FAERS Safety Report 4326471-7 (Version None)
Quarter: 2004Q1

REPORT INFORMATION
  Report Type: 
  Country: None (occurrence: None)
  Receive Date: 20040323
  Receipt Date: 20030626
  Transmission Date: 20041129
  Serious: Yes (Hospitalization)
  Sender: FDA-Public Use
  Company Number: 0300010EN0020P

PATIENT
  Age: 4 Year
  Sex: Male
  Weight: 21.9 kg

DRUGS (5)
  1. ONCASPAR [Suspect]
     Indication: LEUKAEMIA
     Dosage: 1975 750 U/ML IM
     Dates: start: 20021205, end: 20021205
  2. VINCRISTINE [Concomitant]
  3. FLUCONAZOLE [Concomitant]
  4. SEPTRA [Concomitant]
  5. LACTULOSE [Concomitant]

REACTIONS (2)
  - FACE OEDEMA [None]
  - URTICARIA [None]
